FAERS Safety Report 6345141-7 (Version None)
Quarter: 2009Q3

REPORT INFORMATION
  Report Type: 
  Country: None (occurrence: None)
  Receive Date: 20090909
  Receipt Date: 20071106
  Transmission Date: 20100115
  Serious: Yes (Other)
  Sender: FDA-Public Use
  Company Number: US-ASTRAZENECA-2007UW09705

PATIENT
  Age: 525 Month
  Sex: Female

DRUGS (16)
  1. SEROQUEL [Suspect]
     Indication: SCHIZOPHRENIA
     Dosage: 400-500 MG
     Route: 048
     Dates: start: 20000301
  2. SEROQUEL [Suspect]
     Route: 048
     Dates: start: 20020301, end: 20040301
  3. REMERON [Concomitant]
     Route: 048
     Dates: start: 20030102
  4. ALDACTONE [Concomitant]
     Indication: HYPERTENSION
     Route: 048
     Dates: start: 20000101
  5. ZOCOR [Concomitant]
     Route: 048
     Dates: start: 20030102
  6. NEURONTIN [Concomitant]
     Indication: HEADACHE
     Route: 048
     Dates: start: 20000301
  7. NEURONTIN [Concomitant]
     Indication: PAIN
     Route: 048
     Dates: start: 20000301
  8. PROTONIX [Concomitant]
     Dosage: 40 MG QAM
     Route: 048
     Dates: start: 20030102
  9. COLCHICINE [Concomitant]
     Route: 048
     Dates: start: 20030102
  10. PREMPRO [Concomitant]
     Indication: MENOPAUSE
     Dosage: 0.625 MG QAM
     Route: 048
     Dates: start: 20030102
  11. EFFEXOR XR [Concomitant]
     Route: 048
     Dates: start: 20030102
  12. SYNTHROID [Concomitant]
     Dates: start: 19930101
  13. METFORMIN HCL [Concomitant]
     Dosage: 1000 MG Q AM AND 500 MG QHS
     Route: 048
     Dates: start: 20030102
  14. ZOLOFT [Concomitant]
     Dosage: 50-100 MG
     Route: 048
     Dates: start: 20030103
  15. CALCIUM CARBONATE [Concomitant]
     Dosage: 500 MG QAM
     Route: 048
     Dates: start: 20030103
  16. PAXIL [Concomitant]
     Route: 048
     Dates: start: 20000301, end: 20020103

REACTIONS (4)
  - DIABETES MELLITUS [None]
  - DIABETIC KETOACIDOSIS [None]
  - POLYNEUROPATHY [None]
  - TYPE 2 DIABETES MELLITUS [None]
